FAERS Safety Report 8618058-2 (Version None)
Quarter: 2012Q3

REPORT INFORMATION
  Report Type: 
  Country: None (occurrence: None)
  Receive Date: 20120824
  Receipt Date: 20120322
  Transmission Date: 20120928
  Serious: No
  Sender: FDA-Public Use
  Company Number: US-ASTRAZENECA-2012SE09434

PATIENT
  Age: 74 Year
  Sex: Female
  Weight: 72.6 kg

DRUGS (12)
  1. SYMBICORT [Suspect]
     Dosage: 160/4.5 MCG, 1 PUFFS  TWO TIMES DAILY
     Route: 055
  2. TRAZIDONE [Concomitant]
  3. SYMBICORT [Suspect]
     Indication: CHRONIC OBSTRUCTIVE PULMONARY DISEASE
     Dosage: 160/4.5 MCG, 2 PUFFS  TWO TIMES DAILY
     Route: 055
     Dates: start: 20110607
  4. XANAX [Concomitant]
  5. SEROQUEL [Suspect]
     Indication: NERVOUSNESS
     Route: 048
     Dates: start: 20111101
  6. VENTOLIN [Concomitant]
     Dosage: TWICE FOR TWO MONTHS
  7. DULCOLAX [Concomitant]
     Indication: FAECES HARD
  8. SEROQUEL [Suspect]
     Indication: SLEEP DISORDER
     Route: 048
     Dates: start: 20111101
  9. PROTONIC [Concomitant]
     Indication: ABDOMINAL DISCOMFORT
  10. ASPIRIN [Concomitant]
  11. PAXIL [Concomitant]
  12. LASIX [Concomitant]

REACTIONS (3)
  - NERVOUSNESS [None]
  - DYSPNOEA [None]
  - OFF LABEL USE [None]
